FAERS Safety Report 10206179 (Version 1)
Quarter: 2014Q2

REPORT INFORMATION
  Report Type: Spontaneous
  Country: US (occurrence: None)
  Receive Date: 20140527
  Receipt Date: 20140527
  Transmission Date: 20141212
  Serious: Yes (Other)
  Sender: FDA-Public Use
  Company Number: IPC201405-000238

PATIENT
  Age: 56 Year
  Sex: Female

DRUGS (3)
  1. HYDROXYCHLOROQUINE SULFATE [Suspect]
     Indication: RHEUMATOID ARTHRITIS
  2. NABUMATONE [Suspect]
  3. IBUPROFEN [Suspect]

REACTIONS (8)
  - Retinopathy [None]
  - Drug interaction [None]
  - Visual acuity reduced [None]
  - Impaired driving ability [None]
  - Maculopathy [None]
  - Retinal degeneration [None]
  - Visual field defect [None]
  - Retinal toxicity [None]
